FAERS Safety Report 12317070 (Version 1)
Quarter: 2016Q2

REPORT INFORMATION
  Report Type: Spontaneous
  Country: US (occurrence: US)
  Receive Date: 20160429
  Receipt Date: 20160429
  Transmission Date: 20160815
  Serious: Yes (Hospitalization)
  Sender: FDA-Public Use
  Company Number: US-BEH-2016061809

PATIENT
  Sex: Female
  Weight: 85 kg

DRUGS (24)
  1. ACETAMINOPHEN. [Concomitant]
     Active Substance: ACETAMINOPHEN
  2. DIPHENHYDRAMINE. [Concomitant]
     Active Substance: DIPHENHYDRAMINE
  3. LEXAPRO [Concomitant]
     Active Substance: ESCITALOPRAM OXALATE
  4. SOMA [Concomitant]
     Active Substance: CARISOPRODOL
  5. LIPITOR [Concomitant]
     Active Substance: ATORVASTATIN CALCIUM
  6. VITAMIN D [Concomitant]
     Active Substance: CHOLECALCIFEROL
  7. ALVESCO [Concomitant]
     Active Substance: CICLESONIDE
  8. LIDOCAINE. [Concomitant]
     Active Substance: LIDOCAINE
  9. CALCIUM [Concomitant]
     Active Substance: CALCIUM
  10. OMEPRAZOLE. [Concomitant]
     Active Substance: OMEPRAZOLE
  11. HIZENTRA [Suspect]
     Active Substance: HUMAN IMMUNOGLOBULIN G
     Indication: IMMUNODEFICIENCY COMMON VARIABLE
  12. HIZENTRA [Suspect]
     Active Substance: HUMAN IMMUNOGLOBULIN G
  13. KEFLEX [Concomitant]
     Active Substance: CEPHALEXIN
  14. HIZENTRA [Suspect]
     Active Substance: HUMAN IMMUNOGLOBULIN G
  15. LOPERAMIDE [Concomitant]
     Active Substance: LOPERAMIDE
  16. DOXEPIN [Concomitant]
     Active Substance: DOXEPIN
  17. PRILOCAINE [Concomitant]
     Active Substance: PRILOCAINE
  18. EPIPEN [Concomitant]
     Active Substance: EPINEPHRINE
  19. AMBIEN [Concomitant]
     Active Substance: ZOLPIDEM TARTRATE
  20. HYDROCHLOROTHIAZIDE. [Concomitant]
     Active Substance: HYDROCHLOROTHIAZIDE
  21. ALLOPURINOL. [Concomitant]
     Active Substance: ALLOPURINOL
  22. LEVOTHYROXINE. [Concomitant]
     Active Substance: LEVOTHYROXINE
  23. HIZENTRA [Suspect]
     Active Substance: HUMAN IMMUNOGLOBULIN G
     Route: 058
     Dates: start: 20110811
  24. ASPIRIN. [Concomitant]
     Active Substance: ASPIRIN

REACTIONS (2)
  - Mastectomy [Unknown]
  - Oropharyngeal pain [Unknown]
